FAERS Safety Report 8806132 (Version 2)
Quarter: 2013Q3

REPORT INFORMATION
  Report Type: Spontaneous
  Country: FR (occurrence: FR)
  Receive Date: 20120925
  Receipt Date: 20130718
  Transmission Date: 20140515
  Serious: Yes (Disabling)
  Sender: FDA-Public Use
  Company Number: PHHY2012FR082512

PATIENT
  Age: 51 Year
  Sex: Male

DRUGS (9)
  1. LESCOL [Suspect]
     Indication: DYSLIPIDAEMIA
     Dosage: 10 MG, DAILY
     Route: 048
     Dates: start: 20120510, end: 20120525
  2. CRESTOR [Suspect]
     Indication: DYSLIPIDAEMIA
     Dosage: 10 MG, DAILY
     Route: 048
     Dates: start: 20120203, end: 201204
  3. CRESTOR [Suspect]
     Dosage: 5 MG, DAILY
     Route: 048
     Dates: start: 201204, end: 20120424
  4. TAHOR [Suspect]
     Indication: DYSLIPIDAEMIA
     Dosage: 80 MG, DAILY
     Route: 048
     Dates: start: 20111218, end: 20111227
  5. TAHOR [Suspect]
     Dosage: 40 MG, DAILY
     Route: 048
     Dates: start: 20111227, end: 201202
  6. TAHOR [Suspect]
     Dosage: 10 MG, DAILY
     Route: 048
     Dates: start: 20120424, end: 20120510
  7. BETA BLOCKING AGENTS [Concomitant]
  8. EFIENT [Concomitant]
  9. KARDEGIC [Concomitant]

REACTIONS (2)
  - Myalgia [Not Recovered/Not Resolved]
  - Blood creatine phosphokinase increased [Not Recovered/Not Resolved]
